FAERS Safety Report 20066597 (Version 1)
Quarter: 2021Q4

REPORT INFORMATION
  Report Type: Spontaneous
  Country: US (occurrence: US)
  Receive Date: 20211115
  Receipt Date: 20211115
  Transmission Date: 20220304
  Serious: Yes (Hospitalization)
  Sender: FDA-Public Use
  Company Number: US-JNJFOC-20211108803

PATIENT
  Age: 64 Year
  Sex: Male
  Weight: 193 kg

DRUGS (2)
  1. ACETAMINOPHEN [Suspect]
     Active Substance: ACETAMINOPHEN
     Indication: Product used for unknown indication
     Route: 048
     Dates: end: 20020501
  2. AMBIEN [Concomitant]
     Active Substance: ZOLPIDEM TARTRATE
     Indication: Product used for unknown indication
     Route: 065
     Dates: end: 20020501

REACTIONS (8)
  - Acute hepatic failure [Recovered/Resolved]
  - Multiple organ dysfunction syndrome [Recovered/Resolved]
  - Sepsis [Recovered/Resolved]
  - Pneumonia [Recovered/Resolved]
  - Acute myocardial infarction [Recovered/Resolved]
  - Acute kidney injury [Recovered/Resolved]
  - Delirium tremens [Recovered/Resolved]
  - Enterococcal infection [Recovered/Resolved]
